FAERS Safety Report 4477741-3 (Version None)
Quarter: 2004Q4

REPORT INFORMATION
  Report Type: 
  Country: None (occurrence: None)
  Receive Date: 20041014
  Receipt Date: 20041001
  Transmission Date: 20050328
  Serious: Yes (Other)
  Sender: FDA-Public Use
  Company Number: 163-20785-04100139

PATIENT

DRUGS (2)
  1. THALOMID [Suspect]
     Indication: METASTASES TO CENTRAL NERVOUS SYSTEM
     Dosage: DAILY AT BEDTIME 400 MG (WEEK 1); 800 MG (WEEK 2); 1000 MG (WEEK 3 + 4); 1200 MG (WEEK 5 AND ABOVE)
     Dates: start: 20030708
  2. RADIATION [Suspect]
     Dosage: 1 FRACTION DAILY DAYS 1 TO 5 EVERY WEEK FOR 3 WEEKS (TOTAL 37.5 GY)

REACTIONS (10)
  - ANOREXIA [None]
  - DEHYDRATION [None]
  - DYSPHAGIA [None]
  - DYSPHASIA [None]
  - FATIGUE [None]
  - GASTRITIS [None]
  - HYPOKALAEMIA [None]
  - INFECTION [None]
  - NAUSEA [None]
  - VOMITING [None]
